FAERS Safety Report 8197605-1 (Version None)
Quarter: 2012Q1

REPORT INFORMATION
  Report Type: 
  Country: None (occurrence: None)
  Receive Date: 20120227
  Receipt Date: 20111116
  Transmission Date: 20120608
  Serious: No
  Sender: FDA-Public Use
  Company Number: 339592

PATIENT
  Age: 46 Year
  Sex: Female

DRUGS (5)
  1. METFORMIN HCL [Concomitant]
  2. CENTRUM /00554501/ (MINERALS NOS, VITAMINS NOS) [Concomitant]
  3. VICTOZA [Suspect]
     Indication: TYPE 2 DIABETES MELLITUS
     Dosage: SUBCUTANEOUS
     Route: 058
  4. WELLBUTRIN [Concomitant]
  5. TRAZODONE HCL [Concomitant]

REACTIONS (2)
  - FATIGUE [None]
  - ASTHENIA [None]
